FAERS Safety Report 12418931 (Version 1)
Quarter: 2016Q2

REPORT INFORMATION
  Report Type: Spontaneous
  Country: GB (occurrence: None)
  Receive Date: 20160527
  Receipt Date: 20160527
  Transmission Date: 20160815
  Serious: Yes (Disabling)
  Sender: FDA-Public Use
  Company Number: None

PATIENT
  Age: 33 Year
  Sex: Female

DRUGS (6)
  1. MIRENA [Suspect]
     Active Substance: LEVONORGESTREL
  2. PROGESTERONE CREAM [Concomitant]
     Active Substance: PROGESTERONE
  3. VITAMIN D [Concomitant]
     Active Substance: CHOLECALCIFEROL
  4. AMYTRIPTALINE [Concomitant]
  5. VITAMIN B [Concomitant]
     Active Substance: VITAMIN B
  6. MAGNESIUM [Concomitant]
     Active Substance: MAGNESIUM

REACTIONS (14)
  - Anxiety [None]
  - Suicidal ideation [None]
  - Mobility decreased [None]
  - Emotional distress [None]
  - Weight increased [None]
  - Migraine [None]
  - Depression [None]
  - Screaming [None]
  - Panic attack [None]
  - Acne [None]
  - Activities of daily living impaired [None]
  - Limb discomfort [None]
  - Abdominal distension [None]
  - Fatigue [None]

NARRATIVE: CASE EVENT DATE: 20160112
